FAERS Safety Report 14850031 (Version 3)
Quarter: 2018Q3

REPORT INFORMATION
  Report Type: Report from Study
  Country: US (occurrence: US)
  Receive Date: 20180504
  Receipt Date: 20180924
  Transmission Date: 20181010
  Serious: Yes (Hospitalization)
  Sender: FDA-Public Use
  Company Number: US-ACTELION-A-NJ2016-139108

PATIENT
  Age: 56 Year
  Sex: Female
  Weight: 52.61 kg

DRUGS (7)
  1. VELETRI [Suspect]
     Active Substance: EPOPROSTENOL
     Dosage: 0.0185 MCG/KG, PER MIN
     Route: 042
     Dates: start: 20160630
  2. PROAIR HFA [Suspect]
     Active Substance: ALBUTEROL SULFATE
     Indication: PRODUCT USED FOR UNKNOWN INDICATION
     Route: 055
  3. COUMADIN [Concomitant]
     Active Substance: WARFARIN SODIUM
  4. VELETRI [Suspect]
     Active Substance: EPOPROSTENOL
     Indication: PULMONARY ARTERIAL HYPERTENSION
     Dosage: 23 NG/KG PER MIN
     Route: 042
     Dates: start: 20160630
  5. LETAIRIS [Suspect]
     Active Substance: AMBRISENTAN
     Indication: PRODUCT USED FOR UNKNOWN INDICATION
     Dosage: 10 MG, UNK
     Route: 065
  6. ADCIRCA [Concomitant]
     Active Substance: TADALAFIL
  7. REMODULIN [Suspect]
     Active Substance: TREPROSTINIL
     Indication: PULMONARY ARTERIAL HYPERTENSION
     Dosage: 0.0417 MCG/KG,
     Route: 058
     Dates: start: 20150123

REACTIONS (31)
  - Dyspnoea [Unknown]
  - Pulmonary arterial pressure increased [Unknown]
  - Pain in extremity [Unknown]
  - Depression [Unknown]
  - Myocardial infarction [Unknown]
  - Condition aggravated [Unknown]
  - Weight decreased [Unknown]
  - Back disorder [Unknown]
  - Oropharyngeal pain [Unknown]
  - Fatigue [Unknown]
  - Pain in jaw [Unknown]
  - Unevaluable event [Unknown]
  - Food craving [Unknown]
  - Fluid retention [Unknown]
  - Fluid overload [Unknown]
  - Diarrhoea [Unknown]
  - Ear discomfort [Unknown]
  - Head discomfort [Unknown]
  - Pulmonary embolism [Unknown]
  - Disease progression [Unknown]
  - Cardiac disorder [Unknown]
  - Palpitations [Unknown]
  - Malaise [Unknown]
  - Iron deficiency [Unknown]
  - Cardiac failure congestive [Unknown]
  - Decreased appetite [Unknown]
  - Nausea [Unknown]
  - Nasal congestion [Unknown]
  - Pulmonary arterial hypertension [Unknown]
  - Ear disorder [Unknown]
  - Wheezing [Unknown]

NARRATIVE: CASE EVENT DATE: 20171009
